FAERS Safety Report 10021393 (Version 2)
Quarter: 2014Q2

REPORT INFORMATION
  Report Type: Spontaneous
  Country: US (occurrence: US)
  Receive Date: 20140319
  Receipt Date: 20140417
  Transmission Date: 20141212
  Serious: No
  Sender: FDA-Public Use
  Company Number: US-LUNDBECK-DKLU1097678

PATIENT
  Age: 7 Month
  Sex: Male

DRUGS (2)
  1. SABRIL (FOR ORAL SOLUTION) [Suspect]
     Indication: EPILEPSY
     Route: 048
     Dates: start: 20131218
  2. SABRIL (FOR ORAL SOLUTION) [Suspect]
     Indication: EPILEPSY

REACTIONS (1)
  - Strabismus [Unknown]
